FAERS Safety Report 4277006-9 (Version None)
Quarter: 2004Q1

REPORT INFORMATION
  Report Type: 
  Country: None (occurrence: None)
  Receive Date: 20040121
  Receipt Date: 20040121
  Transmission Date: 20041129
  Serious: Yes (Other)
  Sender: FDA-Public Use
  Company Number: None

PATIENT
  Age: 83 Year
  Sex: Female
  Weight: 70.3075 kg

DRUGS (1)
  1. MIRTAZAPINE [Suspect]
     Indication: INSOMNIA
     Dosage: 15 MG 1/2 PO QHS
     Route: 048
     Dates: start: 20030922, end: 20031229

REACTIONS (7)
  - ABDOMINAL PAIN UPPER [None]
  - ASTHENIA [None]
  - CONSTIPATION [None]
  - DIZZINESS [None]
  - HALLUCINATION [None]
  - INSOMNIA [None]
  - TREMOR [None]
